FAERS Safety Report 15891810 (Version 1)
Quarter: 2019Q1

REPORT INFORMATION
  Report Type: Spontaneous
  Country: US (occurrence: US)
  Receive Date: 20190130
  Receipt Date: 20190130
  Transmission Date: 20190417
  Serious: Yes (Life-Threatening, Hospitalization)
  Sender: FDA-Public Use
  Company Number: US-GREER LABORATORIES, INC.-2061947

PATIENT
  Age: 42 Year
  Sex: Female
  Weight: 84.55 kg

DRUGS (19)
  1. STERILE DILUENT FOR ALLERGENIC EXTRACT (ALBUMIN (HUMAN)\PHENOL) [Suspect]
     Active Substance: ALBUMIN HUMAN\PHENOL
     Route: 058
     Dates: start: 20181120, end: 20181127
  2. INSECTS (WHOLE BODY), ANT, FIRE SOLENOPSIS INVICTA [Suspect]
     Active Substance: SOLENOPSIS INVICTA
     Indication: MULTIPLE ALLERGIES
     Route: 058
     Dates: start: 20181120, end: 20181120
  3. MULTIVITAMIN-CA-IRON-MINERALS [Concomitant]
     Route: 048
  4. STERILE DILUENT FOR ALLERGENIC EXTRACT (GLYCERIN) [Suspect]
     Active Substance: GLYCERIN
     Route: 058
     Dates: start: 20181120, end: 20181120
  5. YELLOW JACKET HYMENOPTERA VENOM MULTIDOSE [Suspect]
     Active Substance: VESPULA GERMANICA VENOM PROTEIN\VESPULA MACULIFRONS VENOM PROTEIN\VESPULA PENSYLVANICA VENOM PROTEIN\VESPULA SQUAMOSA VENOM PROTEIN\VESPULA VULGARIS VENOM PROTEIN
     Route: 058
     Dates: start: 20171120, end: 20181127
  6. STERILE DILUENT FOR ALLERGENIC EXTRACT (ALBUMIN (HUMAN)\PHENOL) [Suspect]
     Active Substance: ALBUMIN HUMAN\PHENOL
     Route: 058
     Dates: start: 20181127, end: 20181127
  7. FAMOTIDINE. [Concomitant]
     Active Substance: FAMOTIDINE
     Route: 048
  8. STERILE DILUENT FOR ALLERGENIC EXTRACT (GLYCERIN) [Suspect]
     Active Substance: GLYCERIN
     Route: 058
     Dates: start: 20181120, end: 20181120
  9. STERILE DILUENT FOR ALLERGENIC EXTRACT (GLYCERIN) [Suspect]
     Active Substance: GLYCERIN
     Route: 058
     Dates: start: 20181120, end: 20181120
  10. VITAMIN B COMPLEX [Concomitant]
     Active Substance: CYANOCOBALAMIN\DEXPANTHENOL\NIACINAMIDE\PYRIDOXINE HYDROCHLORIDE\RIBOFLAVIN 5^-PHOSPHATE SODIUM\THIAMINE HYDROCHLORIDE\VITAMIN B COMPLEX
     Route: 048
  11. BIOTIN [Concomitant]
     Active Substance: BIOTIN
     Route: 048
  12. FLUOXETINE [Concomitant]
     Active Substance: FLUOXETINE HYDROCHLORIDE
     Route: 048
  13. CLONAZEPAM. [Concomitant]
     Active Substance: CLONAZEPAM
     Route: 048
  14. STERILE DILUENT FOR ALLERGENIC EXTRACT (GLYCERIN) [Suspect]
     Active Substance: GLYCERIN
     Route: 058
     Dates: start: 20181120, end: 20181120
  15. STERILE DILUENT FOR ALLERGENIC EXTRACT (ALBUMIN (HUMAN)\PHENOL) [Suspect]
     Active Substance: ALBUMIN HUMAN\PHENOL
     Route: 058
     Dates: start: 20181127, end: 20181127
  16. EPINEPHRINE. [Concomitant]
     Active Substance: EPINEPHRINE
     Route: 030
  17. CHOLECALCIFEROL, VITAMIN D3 [Concomitant]
     Route: 048
  18. LAMOTRIGINE. [Concomitant]
     Active Substance: LAMOTRIGINE
     Route: 048
  19. INSECTS WHOLE BODY, ANT, FIRE SOLENOPSIS RICHTERI [Suspect]
     Active Substance: SOLENOPSIS RICHTERI
     Route: 058
     Dates: start: 20181120, end: 20181120

REACTIONS (9)
  - Dizziness [Recovered/Resolved]
  - Angioedema [Recovered/Resolved]
  - Dyspnoea [Recovered/Resolved]
  - Presyncope [Recovered/Resolved]
  - Chest discomfort [Recovered/Resolved]
  - Throat clearing [Recovered/Resolved]
  - Flushing [Recovered/Resolved]
  - Stridor [Recovered/Resolved]
  - Unresponsive to stimuli [Recovered/Resolved]

NARRATIVE: CASE EVENT DATE: 20181120
